FAERS Safety Report 7092603-3 (Version None)
Quarter: 2010Q4

REPORT INFORMATION
  Report Type: 
  Country: None (occurrence: None)
  Receive Date: 20101108
  Receipt Date: 20101108
  Transmission Date: 20110411
  Serious: Yes (Other)
  Sender: FDA-Public Use
  Company Number: None

PATIENT
  Sex: Female

DRUGS (1)
  1. VENLAFAXINE HYDROCHLORIDE [Suspect]
     Indication: HOT FLUSH
     Dosage: 75MG ONCE DAILY PO
     Route: 048
     Dates: start: 20101028, end: 20101031

REACTIONS (3)
  - NAUSEA [None]
  - RASH PRURITIC [None]
  - VOMITING [None]
